FAERS Safety Report 8846004 (Version 2)
Quarter: 2013Q4

REPORT INFORMATION
  Report Type: Spontaneous
  Country: US (occurrence: US)
  Receive Date: 20121017
  Receipt Date: 20131218
  Transmission Date: 20140711
  Serious: Yes (Other)
  Sender: FDA-Public Use
  Company Number: US-ROCHE-1146130

PATIENT
  Sex: Female
  Weight: 83.99 kg

DRUGS (3)
  1. ACCUTANE [Suspect]
     Indication: ACNE
     Route: 065
     Dates: start: 1989
  2. ACCUTANE [Suspect]
     Route: 065
     Dates: start: 1991, end: 1992
  3. ACCUTANE [Suspect]
     Route: 065
     Dates: start: 1995

REACTIONS (4)
  - Colitis ulcerative [Unknown]
  - Inflammatory bowel disease [Unknown]
  - Depression [Unknown]
  - Injury [Unknown]
